FAERS Safety Report 4379676-3 (Version None)
Quarter: 2004Q2

REPORT INFORMATION
  Report Type: 
  Country: None (occurrence: None)
  Receive Date: 20040610
  Receipt Date: 20040528
  Transmission Date: 20050107
  Serious: Yes (Disabling)
  Sender: FDA-Public Use
  Company Number: 2004-0007115

PATIENT
  Age: 55 Year
  Sex: Male
  Weight: 65.318 kg

DRUGS (12)
  1. EMTRICITABINE (EMTRICITABINE) [Suspect]
     Indication: HIV INFECTION
     Dates: start: 20040519, end: 20040526
  2. TENOFOVIR DISOPROXIL FUMARATE (TENOFOVIR DISOPROXIL FUMARATE) [Suspect]
     Indication: HIV INFECTION
     Dates: start: 20040519, end: 20040526
  3. SUSTIVA [Concomitant]
  4. PRILOSEC [Concomitant]
  5. VITAMIN B12 [Concomitant]
  6. TESTOSTERONE [Concomitant]
  7. NEURONTIN [Concomitant]
  8. FLORINEF ACETATE (FLUDROCORTISONE ACETATE) [Concomitant]
  9. METHADONE HCL (METHADONE HYDROCHLORIDE) [Concomitant]
  10. ALLEGRA [Concomitant]
  11. BACTRIM [Concomitant]
  12. ALBUTEROL INHALER (SALBUTAMOL) [Concomitant]

REACTIONS (5)
  - ANOREXIA [None]
  - ARTHRALGIA [None]
  - LACTIC ACIDOSIS [None]
  - MYALGIA [None]
  - WEIGHT DECREASED [None]
